FAERS Safety Report 18448740 (Version 1)
Quarter: 2020Q4

REPORT INFORMATION
  Report Type: Report from Study
  Country: US (occurrence: US)
  Receive Date: 20201030
  Receipt Date: 20201030
  Transmission Date: 20210114
  Serious: Yes (Other)
  Sender: FDA-Public Use
  Company Number: US-AMGEN-USASL2020174827

PATIENT
  Sex: Male

DRUGS (1)
  1. OTEZLA [Suspect]
     Active Substance: APREMILAST
     Indication: PSORIASIS
     Dosage: 30 MILLIGRAM, BID
     Route: 065

REACTIONS (5)
  - Vomiting [Recovered/Resolved]
  - Nausea [Recovered/Resolved]
  - Respiratory tract infection [Unknown]
  - Diarrhoea [Recovered/Resolved]
  - Lethargy [Recovered/Resolved]
